FAERS Safety Report 7347015-1 (Version None)
Quarter: 2011Q1

REPORT INFORMATION
  Report Type: 
  Country: None (occurrence: None)
  Receive Date: 20110311
  Receipt Date: 20110302
  Transmission Date: 20110831
  Serious: Yes (Hospitalization)
  Sender: FDA-Public Use
  Company Number: PHHY2010TR84628

PATIENT
  Age: 7 Year
  Sex: Male

DRUGS (1)
  1. CARBAMAZEPINE [Suspect]
     Indication: EPILEPSY
     Dosage: 200 MG, TWICE DAILY
     Route: 048

REACTIONS (8)
  - STUPOR [None]
  - MALAISE [None]
  - CONVULSION [None]
  - LOSS OF CONSCIOUSNESS [None]
  - INTENTIONAL OVERDOSE [None]
  - TOXICITY TO VARIOUS AGENTS [None]
  - VOMITING [None]
  - ANTICONVULSANT DRUG LEVEL INCREASED [None]
